FAERS Safety Report 6866933-1 (Version None)
Quarter: 2010Q3

REPORT INFORMATION
  Report Type: 
  Country: None (occurrence: None)
  Receive Date: 20100722
  Receipt Date: 20100712
  Transmission Date: 20110219
  Serious: Yes (Hospitalization)
  Sender: FDA-Public Use
  Company Number: US-ROCHE-702910

PATIENT
  Sex: Female

DRUGS (13)
  1. MYCOPHENOLATE MOFETIL [Suspect]
     Route: 048
     Dates: start: 20070120
  2. NEORAL [Suspect]
     Route: 048
     Dates: start: 20070120
  3. PREDNISONE [Suspect]
     Route: 048
     Dates: start: 20070326
  4. COLACE [Concomitant]
     Dates: start: 20070123
  5. NEURONTIN [Concomitant]
     Dates: start: 20091211
  6. HYDROCODONE [Concomitant]
     Dates: start: 20080424
  7. LISINOPRIL [Concomitant]
     Dates: start: 20081124
  8. METOPROLOL [Concomitant]
     Dates: start: 20071215
  9. PAMELOR [Concomitant]
     Dates: start: 20091211
  10. OXYCONTIN [Concomitant]
     Dates: start: 20091211
  11. PEPCID [Concomitant]
     Dates: start: 20080206
  12. PRAVASTATIN [Concomitant]
     Dates: start: 20081225
  13. XANAX [Concomitant]
     Dates: start: 20070503

REACTIONS (3)
  - CHEST DISCOMFORT [None]
  - CHEST PAIN [None]
  - URINARY TRACT INFECTION [None]
